FAERS Safety Report 10398040 (Version 1)
Quarter: 2014Q3

REPORT INFORMATION
  Report Type: Spontaneous
  Country: JP (occurrence: None)
  Receive Date: 20140818
  Receipt Date: 20140818
  Transmission Date: 20150326
  Serious: Yes (Hospitalization)
  Sender: FDA-Public Use
  Company Number: AXC-2014-000498

PATIENT
  Age: 69 Year
  Sex: Female

DRUGS (1)
  1. URSODEOXYCHOLIC ACID [Suspect]
     Active Substance: URSODIOL
     Indication: CHRONIC HEPATITIS C
     Dates: start: 201207

REACTIONS (2)
  - Pseudolymphoma [None]
  - Off label use [None]
